FAERS Safety Report 5397991-1 (Version None)
Quarter: 2007Q3

REPORT INFORMATION
  Report Type: 
  Country: None (occurrence: None)
  Receive Date: 20070724
  Receipt Date: 20070713
  Transmission Date: 20080115
  Serious: Yes (Hospitalization)
  Sender: FDA-Public Use
  Company Number: 2007BI011703

PATIENT
  Age: 49 Year
  Sex: Male
  Weight: 77.1115 kg

DRUGS (2)
  1. AVONEX [Suspect]
     Indication: MULTIPLE SCLEROSIS
     Dosage: 30 UG;QW;IM
     Route: 030
     Dates: start: 20000101, end: 20050101
  2. AVONEX [Suspect]
     Indication: MULTIPLE SCLEROSIS
     Dosage: 30 UG;QW;IM
     Route: 030
     Dates: start: 20050101

REACTIONS (10)
  - DEHYDRATION [None]
  - DYSARTHRIA [None]
  - DYSSTASIA [None]
  - FAECAL INCONTINENCE [None]
  - FALL [None]
  - FLUID INTAKE REDUCED [None]
  - MOBILITY DECREASED [None]
  - MUSCULAR WEAKNESS [None]
  - URINARY INCONTINENCE [None]
  - VOMITING [None]
